FAERS Safety Report 9833513 (Version 1)
Quarter: 2014Q1

REPORT INFORMATION
  Report Type: Spontaneous
  Country: CA (occurrence: CA)
  Receive Date: 20140122
  Receipt Date: 20140122
  Transmission Date: 20141002
  Serious: Yes (Other)
  Sender: FDA-Public Use
  Company Number: CA-AMGEN-CANSP2014003592

PATIENT
  Age: 51 Year
  Sex: Female

DRUGS (2)
  1. PROLIA [Suspect]
     Indication: OSTEOPOROSIS POSTMENOPAUSAL
     Dosage: UNK
     Route: 065
     Dates: start: 20111011
  2. SOTALOL [Concomitant]
     Dosage: 80 MG, BID

REACTIONS (4)
  - Arrhythmia [Unknown]
  - Skin fissures [Unknown]
  - Dry skin [Unknown]
  - Pain in extremity [Unknown]
